FAERS Safety Report 7432723-4 (Version None)
Quarter: 2011Q2

REPORT INFORMATION
  Report Type: 
  Country: None (occurrence: None)
  Receive Date: 20110422
  Receipt Date: 20110419
  Transmission Date: 20111010
  Serious: Yes (Hospitalization)
  Sender: FDA-Public Use
  Company Number: A0900891A

PATIENT
  Age: 64 Year
  Sex: Male

DRUGS (5)
  1. ALBUTEROL [Concomitant]
  2. ADVAIR HFA [Concomitant]
  3. GLUCOPHAGE [Concomitant]
  4. AVANDIA [Suspect]
     Dosage: 8MG PER DAY
     Route: 048
     Dates: start: 20020625, end: 20090320
  5. COMBIVENT [Concomitant]

REACTIONS (2)
  - MYOCARDIAL INFARCTION [None]
  - CORONARY ARTERY DISEASE [None]
